FAERS Safety Report 4340989-2 (Version None)
Quarter: 2004Q2

REPORT INFORMATION
  Report Type: 
  Country: None (occurrence: None)
  Receive Date: 20040413
  Receipt Date: 20040401
  Transmission Date: 20050107
  Serious: Yes (Hospitalization)
  Sender: FDA-Public Use
  Company Number: 04P-153-0255887-00

PATIENT
  Age: 16 Year
  Sex: Male
  Weight: 18 kg

DRUGS (1)
  1. SEVOFLURANE [Suspect]
     Indication: ANAESTHESIA
     Dosage: INHALATION
     Route: 055

REACTIONS (5)
  - ANAESTHETIC COMPLICATION [None]
  - COUGH [None]
  - DYSPNOEA [None]
  - HYPOXIA [None]
  - POST PROCEDURAL COMPLICATION [None]
